FAERS Safety Report 18376830 (Version 1)
Quarter: 2020Q4

REPORT INFORMATION
  Report Type: Spontaneous
  Country: US (occurrence: US)
  Receive Date: 20201012
  Receipt Date: 20201012
  Transmission Date: 20210114
  Serious: Yes (Hospitalization)
  Sender: FDA-Public Use
  Company Number: None

PATIENT
  Age: 69 Year
  Sex: Female
  Weight: 54 kg

DRUGS (19)
  1. AMLODIPINE [Concomitant]
     Active Substance: AMLODIPINE BESYLATE
  2. ANASTRAZOLE [Concomitant]
     Active Substance: ANASTROZOLE
  3. OMNIPAQUE [Concomitant]
     Active Substance: IOHEXOL
  4. PREGABALIN. [Concomitant]
     Active Substance: PREGABALIN
  5. LIDODERM [Concomitant]
     Active Substance: LIDOCAINE
  6. MAGIC MOUTHWASH [Concomitant]
     Active Substance: DIPHENHYDRAMINE HYDROCHLORIDE\LIDOCAINE HYDROCHLORIDE\NYSTATIN
  7. VITAMIN B12 [Concomitant]
     Active Substance: CYANOCOBALAMIN
  8. DEXAMETHASONE. [Concomitant]
     Active Substance: DEXAMETHASONE
  9. METFORMIN [Concomitant]
     Active Substance: METFORMIN HYDROCHLORIDE
  10. OXYCODONE [Concomitant]
     Active Substance: OXYCODONE
  11. IBRANCE [Suspect]
     Active Substance: PALBOCICLIB
     Indication: BREAST CANCER
     Dosage: OTHER FREQUENCY:QD FOR 21/28 DAYS;?
     Route: 048
     Dates: start: 20200714
  12. ONDANSETRON [Concomitant]
     Active Substance: ONDANSETRON
  13. CYCLOBENZAPRINE. [Concomitant]
     Active Substance: CYCLOBENZAPRINE
  14. MULTIHANCE [Concomitant]
     Active Substance: GADOBENATE DIMEGLUMINE
  15. FAMOTIDINE. [Concomitant]
     Active Substance: FAMOTIDINE
  16. ATORVASTATIN [Concomitant]
     Active Substance: ATORVASTATIN
  17. LORATADINE. [Concomitant]
     Active Substance: LORATADINE
  18. HEPARIN LOCK FLUSH [Concomitant]
     Active Substance: HEPARIN SODIUM
  19. VANCOMYCIN [Concomitant]
     Active Substance: VANCOMYCIN

REACTIONS (2)
  - Dyspnoea [None]
  - Oedema [None]

NARRATIVE: CASE EVENT DATE: 20201012
